FAERS Safety Report 8595763 (Version 4)
Quarter: 2014Q1

REPORT INFORMATION
  Report Type: Spontaneous
  Country: US (occurrence: US)
  Receive Date: 20120605
  Receipt Date: 20140107
  Transmission Date: 20141002
  Serious: Yes (Other)
  Sender: FDA-Public Use
  Company Number: US-ASTRAZENECA-2012SE34992

PATIENT
  Age: 681 Month
  Sex: Male
  Weight: 83.9 kg

DRUGS (31)
  1. NEXIUM [Suspect]
     Indication: DYSPEPSIA
     Route: 048
     Dates: start: 2003
  2. NEXIUM [Suspect]
     Indication: DYSPEPSIA
     Route: 048
     Dates: start: 20030409
  3. PRILOSEC [Suspect]
     Route: 048
     Dates: start: 20051108
  4. PRILOSEC [Suspect]
     Dosage: 20 MG OTC
     Route: 048
     Dates: start: 20051204
  5. PRILOSEC [Suspect]
     Dosage: 20 MG
     Route: 048
     Dates: start: 20130218
  6. ROLAIDS [Concomitant]
  7. TUMS [Concomitant]
  8. ALKA-SELTZER [Concomitant]
  9. LEVAQUIN [Concomitant]
     Dates: start: 20030211
  10. DIAZEPAM [Concomitant]
     Dates: start: 20030915
  11. LORTAB [Concomitant]
     Dates: start: 20040102
  12. CEPHALEXIN [Concomitant]
     Dates: start: 20030228
  13. CLONAZEPAM [Concomitant]
     Dates: start: 20030303
  14. CLONAZEPAM [Concomitant]
  15. ZITHROMAX [Concomitant]
     Dates: start: 20030311
  16. NYSTATIN [Concomitant]
     Dates: start: 20040128
  17. COMBIVENT [Concomitant]
     Dates: start: 20040216
  18. WELLBUTRIN [Concomitant]
     Dates: start: 20040216
  19. ARMOUR THYRO [Concomitant]
  20. PREDNISONE [Concomitant]
  21. TRICOR [Concomitant]
  22. ALENDRONATE [Concomitant]
  23. FLEXERIL [Concomitant]
     Dates: start: 20130218
  24. MS CONTIN [Concomitant]
     Dosage: OD/BID
  25. DUEXIS [Concomitant]
  26. PERCOCET [Concomitant]
     Dosage: 10/325 MG TID PRN
  27. DILANTIN [Concomitant]
     Route: 048
  28. FOLIC ACID [Concomitant]
     Route: 048
  29. FOSAMAX [Concomitant]
     Route: 048
  30. LEXAPRO [Concomitant]
     Route: 048
  31. MOBIC [Concomitant]
     Route: 048

REACTIONS (8)
  - Convulsion [Unknown]
  - Peripheral arterial occlusive disease [Unknown]
  - Osteoporosis [Unknown]
  - Spinal compression fracture [Unknown]
  - Arthritis [Unknown]
  - Chronic obstructive pulmonary disease [Unknown]
  - Stress fracture [Unknown]
  - Depression [Unknown]
